FAERS Safety Report 7743272-8 (Version None)
Quarter: 2011Q3

REPORT INFORMATION
  Report Type: 
  Country: None (occurrence: None)
  Receive Date: 20110912
  Receipt Date: 20110822
  Transmission Date: 20111222
  Serious: No
  Sender: FDA-Public Use
  Company Number: US-ROXANE LABORATORIES, INC.-2011-RO-01109RO

PATIENT
  Sex: Male
  Weight: 83 kg

DRUGS (6)
  1. PERINDOPRIL ERBUMINE [Suspect]
     Dosage: 6 MG
     Route: 048
     Dates: start: 20110802, end: 20110804
  2. PERINDOPRIL ERBUMINE [Suspect]
     Indication: HYPERTENSION
     Dosage: 6 MG
     Route: 048
     Dates: start: 20110522, end: 20110606
  3. AMLODIPINE [Concomitant]
     Indication: BLOOD PRESSURE
     Dosage: 10 MG
  4. METFORMIN HCL [Concomitant]
     Dosage: 1000 MG
  5. POTASSIUM CHLORIDE [Concomitant]
     Indication: BLOOD PRESSURE
     Dosage: 20 MEQ
  6. TRIAMTERENE AND HYDROCHLOROTHIAZIDE [Concomitant]
     Indication: BLOOD PRESSURE

REACTIONS (3)
  - DRUG INEFFECTIVE [None]
  - INITIAL INSOMNIA [None]
  - OEDEMA PERIPHERAL [None]
